FAERS Safety Report 15798291 (Version 7)
Quarter: 2019Q1

REPORT INFORMATION
  Report Type: Spontaneous
  Country: PT (occurrence: PT)
  Receive Date: 20190108
  Receipt Date: 20190314
  Transmission Date: 20190417
  Serious: Yes (Disabling, Other)
  Sender: FDA-Public Use
  Company Number: PT-009507513-1901PRT001114

PATIENT
  Age: 43 Year
  Sex: Female

DRUGS (2)
  1. PULMICORT TURBUHALER [Suspect]
     Active Substance: BUDESONIDE
     Indication: RHINITIS ALLERGIC
     Dosage: 1 PUFF (ON EACH NOSTRIL), BID (DURING CRISIS)
     Route: 055
     Dates: end: 201802
  2. NASOMET [Suspect]
     Active Substance: MOMETASONE FUROATE
     Indication: RHINITIS ALLERGIC
     Dosage: 2 PUFF(S) (ON EACH NOSTRIL), QD (DURING CRISIS)
     Route: 055
     Dates: end: 201802

REACTIONS (3)
  - Visual impairment [Recovered/Resolved with Sequelae]
  - Chorioretinopathy [Recovered/Resolved with Sequelae]
  - Blindness unilateral [Not Recovered/Not Resolved]

NARRATIVE: CASE EVENT DATE: 201802
